FAERS Safety Report 5532378-X (Version None)
Quarter: 2007Q4

REPORT INFORMATION
  Report Type: 
  Country: None (occurrence: None)
  Receive Date: 20071128
  Receipt Date: 20071120
  Transmission Date: 20080405
  Serious: Yes (Other)
  Sender: FDA-Public Use
  Company Number: CHPA2007US12528

PATIENT
  Sex: Female

DRUGS (1)
  1. TRIAMINIC NIGHT TIME COLD + COUGH (NCH)(DIPHENHYDRAMINE, PHENYLEPHRINE [Suspect]
     Indication: NASOPHARYNGITIS
     Dosage: 2 TSP, ONCE/SINGLE, ORAL
     Route: 048
     Dates: start: 20071119, end: 20071119

REACTIONS (1)
  - LIP SWELLING [None]
